FAERS Safety Report 7737653-6 (Version None)
Quarter: 2011Q3

REPORT INFORMATION
  Report Type: 
  Country: None (occurrence: None)
  Receive Date: 20110902
  Receipt Date: 20110630
  Transmission Date: 20111222
  Serious: Yes (Death)
  Sender: FDA-Public Use
  Company Number: VALP20110007

PATIENT
  Age: 50 Year
  Sex: Female

DRUGS (3)
  1. HALOPERIDOL [Suspect]
     Indication: BIPOLAR DISORDER
  2. LORAZEPAM [Suspect]
     Indication: BIPOLAR DISORDER
  3. VALPROIC ACID [Suspect]
     Indication: BIPOLAR DISORDER

REACTIONS (3)
  - ACUTE MYOCARDIAL INFARCTION [None]
  - MANIA [None]
  - HYPERTENSION [None]
